FAERS Safety Report 12144845 (Version 1)
Quarter: 2016Q1

REPORT INFORMATION
  Report Type: Other
  Country: US (occurrence: US)
  Receive Date: 20160304
  Receipt Date: 20160304
  Transmission Date: 20160526
  Serious: No
  Sender: FDA-Public Use
  Company Number: US-ACORDA-ACO_115660_2015

PATIENT
  Age: 59 Year
  Sex: Male
  Weight: 78.5 kg

DRUGS (2)
  1. AMPYRA [Suspect]
     Active Substance: DALFAMPRIDINE
     Indication: GAIT DISTURBANCE
  2. AMPYRA [Suspect]
     Active Substance: DALFAMPRIDINE
     Indication: MULTIPLE SCLEROSIS
     Dosage: 10 MG, Q 12 HRS
     Route: 048
     Dates: start: 20150717, end: 20150721

REACTIONS (7)
  - Frustration tolerance decreased [Recovered/Resolved]
  - Feeling abnormal [Recovered/Resolved]
  - Anxiety [Recovered/Resolved]
  - Anger [Recovered/Resolved]
  - Psychomotor hyperactivity [Recovered/Resolved]
  - Drug ineffective [Unknown]
  - Tension [Recovered/Resolved]

NARRATIVE: CASE EVENT DATE: 201507
